FAERS Safety Report 13184848 (Version 3)
Quarter: 2017Q1

REPORT INFORMATION
  Report Type: Spontaneous
  Country: US (occurrence: US)
  Receive Date: 20170203
  Receipt Date: 20170327
  Transmission Date: 20170428
  Serious: No
  Sender: FDA-Public Use
  Company Number: US-GLAXOSMITHKLINE-US2017014922

PATIENT
  Age: 42 Year
  Sex: Female

DRUGS (1)
  1. NUCALA [Suspect]
     Active Substance: MEPOLIZUMAB
     Indication: ASTHMA
     Dosage: 100 MG, CYC
     Route: 058
     Dates: start: 201605, end: 201701

REACTIONS (8)
  - Drug screen false positive [Unknown]
  - Product use issue [Unknown]
  - Condition aggravated [Unknown]
  - Chest pain [Unknown]
  - Drug screen positive [Unknown]
  - Mobility decreased [Unknown]
  - Asthma [Unknown]
  - Vomiting [Unknown]

NARRATIVE: CASE EVENT DATE: 201609
